FAERS Safety Report 8221358-1 (Version None)
Quarter: 2012Q1

REPORT INFORMATION
  Report Type: 
  Country: None (occurrence: None)
  Receive Date: 20120320
  Receipt Date: 20120315
  Transmission Date: 20120608
  Serious: Yes (Death, Hospitalization, Other)
  Sender: FDA-Public Use
  Company Number: PHHY2012NG020659

PATIENT
  Age: 58 Year
  Sex: Female
  Weight: 65 kg

DRUGS (7)
  1. CYCLOPHOSPHAMIDE [Concomitant]
  2. ADRIAMYCIN PFS [Concomitant]
  3. FEMARA [Suspect]
     Indication: BREAST CANCER
     Dosage: 2.5 MG, DAILY
     Route: 048
     Dates: start: 20120218, end: 20120219
  4. PACLITAXEL [Concomitant]
     Indication: BREAST CANCER
     Dosage: 50 MG, UNK
     Route: 042
     Dates: start: 20120215
  5. EPIRUBICIN [Concomitant]
     Indication: BREAST CANCER
     Dosage: 50 MG, UNK
     Route: 042
     Dates: start: 20120215
  6. FEMARA [Suspect]
     Dosage: 2.5 MG, DAILY
     Route: 048
     Dates: start: 20120222, end: 20120224
  7. FLUOROURACIL [Concomitant]

REACTIONS (4)
  - LOSS OF CONSCIOUSNESS [None]
  - VOMITING [None]
  - ANXIETY [None]
  - ASTHENIA [None]
